FAERS Safety Report 14267851 (Version 2)
Quarter: 2017Q4

REPORT INFORMATION
  Report Type: Report from Study
  Country: GB (occurrence: GB)
  Receive Date: 20171211
  Receipt Date: 20171229
  Transmission Date: 20180321
  Serious: Yes (Hospitalization, Other)
  Sender: FDA-Public Use
  Company Number: PHHY2015GB027252

PATIENT
  Age: 49 Year
  Sex: Female

DRUGS (2)
  1. GILENYA [Suspect]
     Active Substance: FINGOLIMOD HYDROCHLORIDE
     Indication: MULTIPLE SCLEROSIS
     Dosage: UNK, QD
     Route: 048
     Dates: start: 201309, end: 20160307
  2. GILENYA [Suspect]
     Active Substance: FINGOLIMOD HYDROCHLORIDE
     Dosage: UNK, QD
     Route: 048
     Dates: start: 20160901

REACTIONS (13)
  - Anaemia [Unknown]
  - Jaundice [Recovered/Resolved]
  - Calcium deficiency [Unknown]
  - Cholecystitis [Recovered/Resolved]
  - Lymphoedema [Unknown]
  - Gallbladder disorder [Unknown]
  - Pancreatitis [Recovered/Resolved]
  - Abdominal pain [Unknown]
  - Alanine aminotransferase increased [Recovered/Resolved]
  - Vitamin D deficiency [Unknown]
  - Jaundice cholestatic [Recovered/Resolved]
  - Lymphocyte count decreased [Unknown]
  - Nausea [Unknown]

NARRATIVE: CASE EVENT DATE: 201505
